FAERS Safety Report 23594781 (Version 1)
Quarter: 2024Q1

REPORT INFORMATION
  Report Type: Other
  Country: US (occurrence: None)
  Receive Date: 20240305
  Receipt Date: 20240305
  Transmission Date: 20240410
  Serious: Yes (Death)
  Sender: FDA-Public Use
  Company Number: US-ROCHE-3517498

PATIENT
  Age: 78 Year
  Sex: Male

DRUGS (18)
  1. RITUXAN [Suspect]
     Active Substance: RITUXIMAB
     Indication: Interstitial lung disease
     Dosage: INFUSE 1000 MG INTRAVENOUSLY EVERY 14 DAY(S) FOR 2 DOSES?VIAL
     Route: 042
     Dates: end: 20230911
  2. TYLENOL [Concomitant]
     Active Substance: ACETAMINOPHEN
     Dosage: TAKE 650 MG BY MOUTH 6 HOURS AS NEEDED FOR MODERATE PAIN
  3. XANAX [Concomitant]
     Active Substance: ALPRAZOLAM
     Dosage: 0.5 MG
  4. ELIQUIS [Concomitant]
     Active Substance: APIXABAN
     Dosage: 1 TABLET BY MOUTH 2 TIMES IN A DAY
  5. ASPIRIN [Concomitant]
     Active Substance: ASPIRIN
     Dosage: 81 MG BY MOUTH AT BEDTIME
  6. LIPITOR [Concomitant]
     Active Substance: ATORVASTATIN CALCIUM
     Dosage: 40 MG BY MOUTH DAILY
  7. ZETIA [Concomitant]
     Active Substance: EZETIMIBE
     Dosage: 1 TABLET BY MOUTH DAILY
  8. FLONASE [Concomitant]
     Active Substance: FLUTICASONE PROPIONATE
     Dosage: 2 SPRAYS
  9. FOLVITE [Concomitant]
     Active Substance: FOLIC ACID
     Dosage: 1 MG BY MOUTH MORNING
  10. LASIX [Concomitant]
     Active Substance: FUROSEMIDE
     Dosage: 80  MG BY MOUTH 2 TIMES IN A DAY.
  11. GLUCOSAMINE [Concomitant]
     Active Substance: GLUCOSAMINE
     Dosage: 500 MG CAPSULE
  12. CORTEF [Concomitant]
     Active Substance: HYDROCORTISONE
     Dosage: 10 MG BY MOUTH DAILY.
  13. MAGNESIUM OXIDE [Concomitant]
     Active Substance: MAGNESIUM OXIDE
     Dosage: 1 TABLET BY MOUTH DAILY.
  14. OFEV [Concomitant]
     Active Substance: NINTEDANIB
     Dosage: TAKE 1 CAPSULE BY MOUTH 2 TIMES DAILY
  15. NITROSTAT [Concomitant]
     Active Substance: NITROGLYCERIN
     Dosage: PLACE 1 TABLET UNDER THE TONGUE AS E=NEEDED FOR CHEST PAIN
  16. POTASSIUM CHLORIDE [Concomitant]
     Active Substance: POTASSIUM CHLORIDE
     Dosage: 2 TABLETS BY MOUTH DAILY
  17. DELTASONE [Concomitant]
     Active Substance: PREDNISONE
     Dosage: 40 MG DAILY
  18. ALDACTONE [Concomitant]
     Active Substance: SPIRONOLACTONE
     Dosage: TAKE 1 TABLET BY MOUTH DAILY

REACTIONS (2)
  - Death [Fatal]
  - Off label use [Unknown]
